FAERS Safety Report 21371816 (Version 10)
Quarter: 2022Q4

REPORT INFORMATION
  Report Type: Report from Study
  Country: KR (occurrence: KR)
  Receive Date: 20220923
  Receipt Date: 20221215
  Transmission Date: 20230112
  Serious: Yes (Hospitalization)
  Sender: FDA-Public Use
  Company Number: KR-ONO-2022KR018737

PATIENT
  Age: 68 Year
  Sex: Male
  Weight: 39 kg

DRUGS (58)
  1. IPILIMUMAB [Suspect]
     Active Substance: IPILIMUMAB
     Indication: Gastric cancer
     Dosage: ON 21-OCT-2022, RECEIVED AT A DOSE OF (32 MG/KG)
     Route: 042
     Dates: start: 20220517, end: 20221021
  2. GIMERACIL\OTERACIL\TEGAFUR [Suspect]
     Active Substance: GIMERACIL\OTERACIL\TEGAFUR
     Indication: Gastric cancer
     Dosage: MOST RECENT DOSE (40 MG/M2) WAS ON 22-OCT-2022
     Route: 048
     Dates: start: 20220517
  3. OXALIPLATIN [Suspect]
     Active Substance: OXALIPLATIN
     Indication: Gastric cancer
     Dosage: ON 21-OCT-2022, RECEIVED AT A DOSE OF (153.4 MG/M2)
     Route: 042
     Dates: start: 20220517, end: 20221021
  4. ITOPRIDE [Concomitant]
     Active Substance: ITOPRIDE
     Indication: Product used for unknown indication
     Route: 048
     Dates: start: 20220531, end: 20220913
  5. ALOXI [Concomitant]
     Active Substance: PALONOSETRON HYDROCHLORIDE
     Indication: Product used for unknown indication
     Dates: start: 20220517, end: 20220517
  6. ALOXI [Concomitant]
     Active Substance: PALONOSETRON HYDROCHLORIDE
     Dates: start: 20220609, end: 20220609
  7. ALOXI [Concomitant]
     Active Substance: PALONOSETRON HYDROCHLORIDE
     Dates: start: 20220701, end: 20220701
  8. PHENIRAMIN [Concomitant]
     Indication: Product used for unknown indication
     Dates: start: 20220701, end: 20220701
  9. PHENIRAMIN [Concomitant]
     Dosage: 4 MG
     Dates: start: 20220713, end: 20220713
  10. PHENIRAMIN [Concomitant]
     Dates: start: 20220729, end: 20220729
  11. PHENIRAMIN [Concomitant]
     Dates: start: 20220919, end: 20220919
  12. PHENIRAMIN [Concomitant]
     Dates: start: 20220920, end: 20220920
  13. PHENIRAMIN [Concomitant]
     Dates: start: 20220905, end: 20220905
  14. PHENIRAMIN [Concomitant]
     Dates: start: 20220926, end: 20220926
  15. PHENIRAMIN [Concomitant]
     Dates: start: 20221026, end: 20221026
  16. HUMAN RED BLOOD CELL [Concomitant]
     Active Substance: HUMAN RED BLOOD CELL
     Indication: Anaemia
     Dosage: 1 UNK
     Dates: start: 20220701, end: 20220701
  17. HUMAN RED BLOOD CELL [Concomitant]
     Active Substance: HUMAN RED BLOOD CELL
     Dosage: 1 UNK
     Dates: start: 20220713, end: 20220713
  18. HUMAN RED BLOOD CELL [Concomitant]
     Active Substance: HUMAN RED BLOOD CELL
     Dosage: 1 UNK
     Dates: start: 20220729, end: 20220729
  19. HUMAN RED BLOOD CELL [Concomitant]
     Active Substance: HUMAN RED BLOOD CELL
     Dosage: 1 UNK
     Dates: start: 20220905, end: 20220905
  20. HUMAN RED BLOOD CELL [Concomitant]
     Active Substance: HUMAN RED BLOOD CELL
     Dosage: 1 UNK
     Dates: start: 20220919, end: 20220919
  21. HUMAN RED BLOOD CELL [Concomitant]
     Active Substance: HUMAN RED BLOOD CELL
     Dosage: 1 UNK
     Dates: start: 20220926, end: 20220926
  22. HUMAN RED BLOOD CELL [Concomitant]
     Active Substance: HUMAN RED BLOOD CELL
     Dosage: 1 UNK
     Dates: start: 20221026, end: 20221026
  23. BANAN [Concomitant]
     Active Substance: CEFPODOXIME PROXETIL
     Indication: Product used for unknown indication
     Route: 048
     Dates: start: 20220728, end: 20220803
  24. ALBUMIN HUMAN [Concomitant]
     Active Substance: ALBUMIN HUMAN
     Indication: Hypoalbuminaemia
     Dosage: 100 MILLILITER
     Dates: start: 20220706, end: 20220720
  25. ALBUMIN HUMAN [Concomitant]
     Active Substance: ALBUMIN HUMAN
     Dosage: 100 MILLILITER
     Dates: start: 20220826, end: 20220826
  26. ALBUMIN HUMAN [Concomitant]
     Active Substance: ALBUMIN HUMAN
     Dosage: 100 MILLILITER
     Dates: start: 20220905, end: 20220905
  27. TRAMADOL HYDROCHLORIDE [Concomitant]
     Active Substance: TRAMADOL HYDROCHLORIDE
     Indication: Abdominal pain
     Dosage: 50 MG
     Dates: start: 20220723, end: 20220723
  28. TRAMADOL HYDROCHLORIDE [Concomitant]
     Active Substance: TRAMADOL HYDROCHLORIDE
     Dosage: 50 MG
     Dates: start: 20220901, end: 20220901
  29. TRAMADOL HYDROCHLORIDE [Concomitant]
     Active Substance: TRAMADOL HYDROCHLORIDE
     Dosage: 50 MG
     Dates: start: 20220924, end: 20221005
  30. TRAMADOL HYDROCHLORIDE [Concomitant]
     Active Substance: TRAMADOL HYDROCHLORIDE
     Dosage: 50 MG
     Dates: start: 20221006, end: 20221008
  31. TRAMADOL HYDROCHLORIDE [Concomitant]
     Active Substance: TRAMADOL HYDROCHLORIDE
     Dosage: 50 MG
     Dates: start: 20221009, end: 20221017
  32. TRAMADOL HYDROCHLORIDE [Concomitant]
     Active Substance: TRAMADOL HYDROCHLORIDE
     Dosage: 50 MG
     Dates: start: 20221025, end: 20221103
  33. TRAMADOL HYDROCHLORIDE [Concomitant]
     Active Substance: TRAMADOL HYDROCHLORIDE
     Dosage: 50 MG
     Dates: start: 20221108, end: 20221108
  34. TRAMADOL HYDROCHLORIDE [Concomitant]
     Active Substance: TRAMADOL HYDROCHLORIDE
     Dosage: 50 MG
     Dates: start: 20221109
  35. CALCIUM GLUCONATE HYDRATE [Concomitant]
     Indication: Product used for unknown indication
     Dosage: 40 MILLILITER
     Dates: start: 20220826, end: 20220826
  36. NEUSTATIN A [Concomitant]
     Indication: Product used for unknown indication
     Dosage: UNK
  37. FREAMINE [ALANINE;ARGININE HYDROCHLORIDE;CYSTEINE HYDROCHLORIDE;GLYCIN [Concomitant]
     Indication: Product used for unknown indication
     Dosage: UNK
  38. RUCALO [Concomitant]
     Indication: Product used for unknown indication
     Dosage: UNK
  39. HERBALS [Concomitant]
     Active Substance: HERBALS
     Indication: Product used for unknown indication
     Dosage: UNK
  40. MEGACE F [Concomitant]
     Indication: Product used for unknown indication
     Dosage: UNK
  41. GLYCERIN [Concomitant]
     Active Substance: GLYCERIN
     Indication: Constipation
     Dates: start: 20220716, end: 20220716
  42. GLYCERIN [Concomitant]
     Active Substance: GLYCERIN
     Dosage: DOSE - 1 UNIT^S NOS
     Dates: start: 20221108, end: 20221108
  43. POLYETHYLENE GLYCOL 4000 [Concomitant]
     Active Substance: POLYETHYLENE GLYCOL 4000
     Indication: Product used for unknown indication
     Dosage: UNK
  44. Mago [Concomitant]
     Indication: Product used for unknown indication
     Dosage: UNK
  45. DULCOLAX NOS [Concomitant]
     Active Substance: BISACODYL OR DOCUSATE SODIUM
     Indication: Product used for unknown indication
     Dosage: UNK
  46. ACETAMINOPHEN [Concomitant]
     Active Substance: ACETAMINOPHEN
     Indication: Product used for unknown indication
     Dosage: UNK
  47. TAZOPERAN [Concomitant]
     Indication: Product used for unknown indication
     Dosage: UNK
  48. NESBELL [Concomitant]
     Indication: Product used for unknown indication
     Dosage: UNK
  49. TANTUM [Concomitant]
     Active Substance: BENZYDAMINE HYDROCHLORIDE
     Indication: Product used for unknown indication
     Dosage: UNK
  50. Diclomed [Concomitant]
     Indication: Product used for unknown indication
     Dosage: UNK
  51. PHOSTEN [Concomitant]
     Indication: Product used for unknown indication
     Dosage: UNK
  52. ENCOVER [Concomitant]
     Indication: Decreased appetite
     Dates: start: 20221026, end: 20221026
  53. FURTMAN [Concomitant]
     Indication: Decreased appetite
     Dates: start: 20221027, end: 20221102
  54. ACETPHEN PREMIX [Concomitant]
     Indication: Pyrexia
     Dates: start: 20221007, end: 20221007
  55. ACETPHEN PREMIX [Concomitant]
     Indication: Flank pain
     Dates: start: 20221108, end: 20221108
  56. METRONIDAZOLE [Concomitant]
     Active Substance: METRONIDAZOLE
     Indication: Product used for unknown indication
  57. PANTOPRAZOLE SODIUM [Concomitant]
     Active Substance: PANTOPRAZOLE SODIUM
     Indication: Product used for unknown indication
  58. Norpin [Concomitant]
     Indication: Product used for unknown indication

REACTIONS (4)
  - Hypoglycaemia [Recovered/Resolved]
  - Diarrhoea [Recovered/Resolved]
  - Muscular weakness [Recovering/Resolving]
  - Rash pustular [Recovering/Resolving]

NARRATIVE: CASE EVENT DATE: 20220629
